FAERS Safety Report 18872744 (Version 2)
Quarter: 2021Q1

REPORT INFORMATION
  Report Type: Report from Study
  Country: US (occurrence: US)
  Receive Date: 20210210
  Receipt Date: 20210303
  Transmission Date: 20210420
  Serious: Yes (Hospitalization, Other)
  Sender: FDA-Public Use
  Company Number: US-TAKEDA-2021TUS003582

PATIENT
  Sex: Female

DRUGS (1)
  1. VEDOLIZUMAB [Suspect]
     Active Substance: VEDOLIZUMAB
     Indication: COLITIS ULCERATIVE
     Dosage: 300 MILLIGRAM
     Route: 042
     Dates: start: 20210113, end: 202102

REACTIONS (11)
  - Mobility decreased [Unknown]
  - Back pain [Unknown]
  - Arthralgia [Unknown]
  - Blood magnesium decreased [Unknown]
  - Hospitalisation [Unknown]
  - Erythema [Unknown]
  - Knee operation [Unknown]
  - Adverse drug reaction [Unknown]
  - Paraesthesia [Unknown]
  - Feeling abnormal [Unknown]
  - Feeling hot [Unknown]
